FAERS Safety Report 4564283-X (Version None)
Quarter: 2005Q1

REPORT INFORMATION
  Report Type: 
  Country: None (occurrence: None)
  Receive Date: 20050128
  Receipt Date: 20050121
  Transmission Date: 20050727
  Serious: Yes (Other)
  Sender: FDA-Public Use
  Company Number: PL-MERCK-0501POL00008

PATIENT
  Sex: Male

DRUGS (1)
  1. VIOXX [Suspect]
     Indication: INFLAMMATION
     Route: 065
     Dates: start: 20021124

REACTIONS (3)
  - CHEST PAIN [None]
  - CORONARY ARTERY DISEASE [None]
  - MYOCARDIAL INFARCTION [None]
